FAERS Safety Report 5623233-5 (Version None)
Quarter: 2008Q1

REPORT INFORMATION
  Report Type: 
  Country: None (occurrence: None)
  Receive Date: 20080207
  Receipt Date: 20080131
  Transmission Date: 20080703
  Serious: Yes (Other)
  Sender: FDA-Public Use
  Company Number: 2008-00585

PATIENT
  Age: 52 Year
  Sex: Male

DRUGS (3)
  1. FUROSEMIDE [Suspect]
     Indication: OEDEMA
     Dosage: 60 MG, DAILY; 20 MG DAILY
     Dates: start: 20070101, end: 20070101
  2. FUROSEMIDE [Suspect]
     Indication: OEDEMA
     Dosage: 60 MG, DAILY; 20 MG DAILY
     Dates: start: 20070101, end: 20070101
  3. LISINOPRIL [Suspect]
     Indication: OEDEMA PERIPHERAL
     Dosage: 10 MG, DAILY
     Dates: start: 20070101, end: 20070101

REACTIONS (4)
  - OLIGURIA [None]
  - PROTEINURIA [None]
  - RENAL FAILURE ACUTE [None]
  - RENAL INJURY [None]
